FAERS Safety Report 8135931-2 (Version None)
Quarter: 2012Q1

REPORT INFORMATION
  Report Type: 
  Country: None (occurrence: None)
  Receive Date: 20120214
  Receipt Date: 20120209
  Transmission Date: 20120608
  Serious: Yes (Hospitalization, Other)
  Sender: FDA-Public Use
  Company Number: JP-PFIZER INC-2012028112

PATIENT
  Age: 76 Year
  Sex: Female
  Weight: 50.7 kg

DRUGS (14)
  1. AROMASIN [Concomitant]
     Dosage: 25 MG, 1X/DAY
     Route: 048
  2. LENDORMIN [Concomitant]
     Dosage: 0.25 MG, 1X/DAY
     Route: 048
  3. LYRICA [Suspect]
     Indication: MUSCULOSKELETAL PAIN
     Dosage: 75 MG, 1X/DAY
     Route: 048
     Dates: start: 20120123, end: 20120125
  4. DAI-KENCHU-TO [Concomitant]
     Dosage: 5 G, 3X/DAY
     Route: 048
  5. MUCOSTA [Concomitant]
     Dosage: 100 MG, 3X/DAY
     Route: 048
  6. ALMARL [Concomitant]
     Dosage: 5 MG, 2X/DAY
     Route: 048
  7. LOXONIN [Concomitant]
     Dosage: 60 MG, 3X/DAY
     Route: 048
  8. MAGMITT [Concomitant]
     Dosage: 990 MG, 3X/DAY
     Route: 048
  9. PURSENNID [Concomitant]
     Dosage: 24 MG, 1X/DAY
     Route: 048
  10. ZONISAMIDE [Concomitant]
     Dosage: 100 MG, 2X/DAY
     Route: 048
  11. SELEGILINE HYDROCHLORIDE [Concomitant]
     Dosage: 2.5 MG, 2X/DAY
     Route: 048
  12. REQUIP [Concomitant]
     Dosage: 2 MG, 3X/DAY
     Route: 048
  13. MENEST [Concomitant]
     Dosage: UNK
     Route: 048
  14. COMTAN [Concomitant]
     Dosage: UNK MG, UNK
     Route: 048

REACTIONS (4)
  - COMMUNICATION DISORDER [None]
  - LOSS OF CONSCIOUSNESS [None]
  - DYSKINESIA [None]
  - SOMNOLENCE [None]
